FAERS Safety Report 15729633 (Version 2)
Quarter: 2018Q4

REPORT INFORMATION
  Report Type: Report from Study
  Country: FR (occurrence: FR)
  Receive Date: 20181217
  Receipt Date: 20181221
  Transmission Date: 20190205
  Serious: Yes (Death, Other)
  Sender: FDA-Public Use
  Company Number: FR-SEATTLE GENETICS-2018SGN00094

PATIENT
  Age: 67 Year
  Sex: Male
  Weight: 76 kg

DRUGS (5)
  1. BRENTUXIMAB VEDOTIN-MPI [Suspect]
     Active Substance: BRENTUXIMAB VEDOTIN
     Dosage: 100 UNK, UNK
     Route: 042
     Dates: start: 20180511, end: 20180713
  2. BRENTUXIMAB VEDOTIN-MPI [Suspect]
     Active Substance: BRENTUXIMAB VEDOTIN
     Indication: HODGKIN^S DISEASE
     Dosage: 137 MG, UNK
     Route: 042
     Dates: start: 20180110
  3. GEMCITABINE [Concomitant]
     Active Substance: GEMCITABINE\GEMCITABINE HYDROCHLORIDE
     Dosage: UNK
     Dates: start: 201805
  4. VINORELBINE [Concomitant]
     Active Substance: VINORELBINE\VINORELBINE TARTRATE
     Dosage: UNK
     Dates: start: 201805
  5. DOXYCYCLINE HYDROCHLORIDE [Concomitant]
     Active Substance: DOXYCYCLINE HYDROCHLORIDE
     Dosage: UNK
     Dates: start: 201805

REACTIONS (4)
  - Weight decreased [Unknown]
  - Therapy partial responder [Unknown]
  - Off label use [Unknown]
  - Hodgkin^s disease [Fatal]

NARRATIVE: CASE EVENT DATE: 20180109
